FAERS Safety Report 8494203-7 (Version None)
Quarter: 2012Q3

REPORT INFORMATION
  Report Type: 
  Country: None (occurrence: None)
  Receive Date: 20120709
  Receipt Date: 20120704
  Transmission Date: 20120928
  Serious: Yes (Hospitalization, Other)
  Sender: FDA-Public Use
  Company Number: PHHY2012AU051580

PATIENT
  Sex: Female

DRUGS (2)
  1. RISPERIDONE [Concomitant]
     Dosage: 1 MG, BID
  2. CLOZARIL [Suspect]
     Indication: SCHIZOPHRENIA
     Dosage: 250 MG, UNK
     Dates: start: 19960628, end: 20120614

REACTIONS (8)
  - VENTRICULAR HYPERTROPHY [None]
  - PARANOIA [None]
  - TROPONIN INCREASED [None]
  - RENAL IMPAIRMENT [None]
  - MITRAL VALVE SCLEROSIS [None]
  - SCHIZOPHRENIA [None]
  - MITRAL VALVE CALCIFICATION [None]
  - SOMATIC DELUSION [None]
